FAERS Safety Report 9108816 (Version 3)
Quarter: 2014Q1

REPORT INFORMATION
  Report Type: Spontaneous
  Country: US (occurrence: US)
  Receive Date: 20130222
  Receipt Date: 20140305
  Transmission Date: 20141002
  Serious: Yes (Other)
  Sender: FDA-Public Use
  Company Number: US-PFIZER INC-2013065322

PATIENT
  Age: 45 Year
  Sex: Female
  Weight: 52.15 kg

DRUGS (4)
  1. LYRICA [Suspect]
     Indication: FIBROMYALGIA
     Dosage: 200 MG, 3X/DAY
     Dates: start: 2008
  2. CHANTIX [Suspect]
     Dosage: UNK
  3. PRISTIQ [Suspect]
     Dosage: UNK
  4. METHOCARBAMOL [Concomitant]
     Indication: BACK PAIN
     Dosage: UNK
     Route: 048

REACTIONS (9)
  - Head injury [Unknown]
  - Memory impairment [Unknown]
  - Road traffic accident [Unknown]
  - Cerebral haemorrhage [Unknown]
  - Haematoma [Unknown]
  - Skull fracture [Unknown]
  - Headache [Unknown]
  - Therapeutic response unexpected [Unknown]
  - Therapeutic response unexpected [Unknown]
